FAERS Safety Report 7906609-2 (Version None)
Quarter: 2011Q4

REPORT INFORMATION
  Report Type: 
  Country: None (occurrence: None)
  Receive Date: 20111110
  Receipt Date: 20111104
  Transmission Date: 20120403
  Serious: Yes (Hospitalization)
  Sender: FDA-Public Use
  Company Number: US-B.I. PHARMACEUTICALS,INC./RIDGEFIELD-2011-BP-24398BP

PATIENT
  Sex: Female

DRUGS (12)
  1. POTASSIUM [Concomitant]
     Indication: BLOOD POTASSIUM DECREASED
  2. COREG [Concomitant]
     Indication: CARDIAC FAILURE CONGESTIVE
  3. AVELOX [Concomitant]
     Indication: BACTERIAL INFECTION
     Dosage: 400 MG
     Route: 048
  4. LEVOTHYROXINE SODIUM [Concomitant]
     Indication: HYPOTHYROIDISM
  5. SPIRIVA [Concomitant]
     Indication: CHRONIC OBSTRUCTIVE PULMONARY DISEASE
     Dosage: 18 MCG
     Route: 055
  6. M.V.I. [Concomitant]
  7. CLARITHROMYCIN [Concomitant]
     Dosage: 500 MG
  8. SPIRONOLACTONE [Concomitant]
     Indication: CARDIAC FAILURE CONGESTIVE
  9. PRADAXA [Suspect]
     Indication: ATRIAL FIBRILLATION
     Dosage: 300 MG
     Route: 048
     Dates: start: 20110601, end: 20111006
  10. ALBUTEROL [Concomitant]
     Indication: CHRONIC OBSTRUCTIVE PULMONARY DISEASE
  11. BIAXIN [Concomitant]
     Indication: BACTERIAL INFECTION
     Dosage: 500 MG
     Route: 048
  12. FUROSEMIDE [Concomitant]
     Indication: CARDIAC FAILURE CONGESTIVE
     Dosage: 20 MG
     Route: 048

REACTIONS (2)
  - CHEST PAIN [None]
  - GASTRIC HAEMORRHAGE [None]
